FAERS Safety Report 21836862 (Version 1)
Quarter: 2023Q1

REPORT INFORMATION
  Report Type: Spontaneous
  Country: US (occurrence: US)
  Receive Date: 20230109
  Receipt Date: 20230109
  Transmission Date: 20230418
  Serious: Yes (Life-Threatening, Hospitalization, Other)
  Sender: FDA-Public Use
  Company Number: US-HALEON-USCH2023GSK000762

PATIENT

DRUGS (4)
  1. DIPHENHYDRAMINE [Suspect]
     Active Substance: DIPHENHYDRAMINE
     Indication: Product used for unknown indication
     Dosage: UNK
  2. ACETAMINOPHEN [Suspect]
     Active Substance: ACETAMINOPHEN
     Indication: Product used for unknown indication
     Dosage: UNK
  3. IBUPROFEN [Suspect]
     Active Substance: IBUPROFEN
     Indication: Product used for unknown indication
     Dosage: UNK
  4. METFORMIN [Suspect]
     Active Substance: METFORMIN HYDROCHLORIDE
     Indication: Product used for unknown indication
     Dosage: UNK

REACTIONS (14)
  - Cardiac arrest [Unknown]
  - Nausea [Unknown]
  - Vomiting [Unknown]
  - Metabolic acidosis [Unknown]
  - Intentional self-injury [Unknown]
  - Acute kidney injury [Unknown]
  - Renal failure [Unknown]
  - Hypoxia [Unknown]
  - Visual impairment [Unknown]
  - Toxicity to various agents [Unknown]
  - Osmolar gap increased [Unknown]
  - Hypotension [Unknown]
  - Metabolic disorder [Unknown]
  - Hyperlactacidaemia [Unknown]
